FAERS Safety Report 5144262-4 (Version None)
Quarter: 2006Q4

REPORT INFORMATION
  Report Type: 
  Country: None (occurrence: None)
  Receive Date: 20061106
  Receipt Date: 20051116
  Transmission Date: 20070319
  Serious: Yes (Hospitalization, Other)
  Sender: FDA-Public Use
  Company Number: 2005UW17442

PATIENT
  Age: 12774 Day
  Sex: Male
  Weight: 70 kg

DRUGS (1)
  1. CRESTOR [Suspect]
     Indication: DYSLIPIDAEMIA
     Route: 048
     Dates: start: 20051103, end: 20051110

REACTIONS (10)
  - CONFUSIONAL STATE [None]
  - CYANOSIS [None]
  - DEHYDRATION [None]
  - GLYCOGEN STORAGE DISEASE TYPE V [None]
  - HYPOTHERMIA [None]
  - PALLOR [None]
  - RHABDOMYOLYSIS [None]
  - SOMNOLENCE [None]
  - SYNCOPE [None]
  - VOMITING [None]
